FAERS Safety Report 9284087 (Version 1)
Quarter: 2013Q2

REPORT INFORMATION
  Report Type: Spontaneous
  Country: DE (occurrence: DE)
  Receive Date: 20130510
  Receipt Date: 20130510
  Transmission Date: 20140414
  Serious: Yes (Hospitalization, Other)
  Sender: FDA-Public Use
  Company Number: DE-TEVA-402447GER

PATIENT
  Age: 0 Year
  Sex: Male

DRUGS (1)
  1. AMITRIPTYLINE [Suspect]
     Route: 063

REACTIONS (2)
  - Apnoea neonatal [Recovered/Resolved]
  - Bradycardia neonatal [Recovered/Resolved]
